FAERS Safety Report 8259219-4 (Version None)
Quarter: 2012Q2

REPORT INFORMATION
  Report Type: 
  Country: None (occurrence: None)
  Receive Date: 20120404
  Receipt Date: 20120329
  Transmission Date: 20120825
  Serious: Yes (Other)
  Sender: FDA-Public Use
  Company Number: US-ASTRAZENECA-2012SE21008

PATIENT
  Age: 78 Year
  Sex: Female
  Weight: 45.4 kg

DRUGS (5)
  1. SYMBICORT [Suspect]
     Indication: RESPIRATORY DISORDER
     Dosage: TWO PUFFS TWICE DAILY
     Route: 055
  2. LIPITOR [Concomitant]
  3. SYMBICORT [Suspect]
     Dosage: ONE OR TWO PUFFS TWICE DAILY AS NEEDED
     Route: 055
     Dates: start: 20110101
  4. SINGULAIR [Concomitant]
  5. ATORVASTATIN [Concomitant]

REACTIONS (4)
  - INTENTIONAL DRUG MISUSE [None]
  - WEIGHT DECREASED [None]
  - ASTHMA [None]
  - OFF LABEL USE [None]
